FAERS Safety Report 16863188 (Version 2)
Quarter: 2019Q4

REPORT INFORMATION
  Report Type: Report from Study
  Country: US (occurrence: US)
  Receive Date: 20190927
  Receipt Date: 20191112
  Transmission Date: 20200122
  Serious: Yes (Hospitalization, Other)
  Sender: FDA-Public Use
  Company Number: US-THERAPEUTICSMD-2019TMD03243

PATIENT
  Age: 84 Year
  Sex: Female
  Weight: 73.47 kg

DRUGS (9)
  1. LISINOPRIL HCTZ [Concomitant]
     Active Substance: HYDROCHLOROTHIAZIDE\LISINOPRIL
  2. SENNA [Concomitant]
     Active Substance: SENNA LEAF\SENNOSIDES\SENNOSIDES A AND B
  3. UNSPECIFIED CHOLESTEROL MEDICATION [Concomitant]
     Active Substance: UNSPECIFIED INGREDIENT
  4. PEPCID [Concomitant]
     Active Substance: FAMOTIDINE
     Dosage: UNK, AS NEEDED
  5. VITAMIN D3 [Concomitant]
     Active Substance: CHOLECALCIFEROL
  6. IMVEXXY [Suspect]
     Active Substance: ESTRADIOL
     Indication: HORMONE REPLACEMENT THERAPY
     Dosage: 10 ?G, 1X/DAY AT BEDTIME
     Route: 067
     Dates: start: 201908, end: 2019
  7. TYLENOL [Concomitant]
     Active Substance: ACETAMINOPHEN
     Dosage: UNK, AS NEEDED
  8. GLUCOSAMINE [Concomitant]
     Active Substance: GLUCOSAMINE
  9. IMVEXXY [Suspect]
     Active Substance: ESTRADIOL
     Dosage: 10 ?G, 2X/WEEK AT BEDTIME
     Route: 067
     Dates: start: 2019

REACTIONS (3)
  - Carotid artery occlusion [Not Recovered/Not Resolved]
  - Off label use [Not Recovered/Not Resolved]
  - Myocardial infarction [Recovered/Resolved]

NARRATIVE: CASE EVENT DATE: 201908
